FAERS Safety Report 6143157-7 (Version None)
Quarter: 2009Q2

REPORT INFORMATION
  Report Type: 
  Country: None (occurrence: None)
  Receive Date: 20090403
  Receipt Date: 20090326
  Transmission Date: 20091009
  Serious: Yes (Disabling, Other)
  Sender: FDA-Public Use
  Company Number: CH-GILEAD-2009-0021171

PATIENT
  Sex: Male

DRUGS (3)
  1. TRUVADA [Suspect]
     Indication: HIV INFECTION
     Dates: start: 20070723
  2. KALETRA [Suspect]
     Dates: start: 20070723
  3. KIVEXA [Suspect]
     Dates: start: 20070723

REACTIONS (2)
  - MULTIPLE FRACTURES [None]
  - OSTEOPOROSIS [None]
